FAERS Safety Report 5690098-5 (Version None)
Quarter: 2008Q1

REPORT INFORMATION
  Report Type: 
  Country: None (occurrence: None)
  Receive Date: 20080331
  Receipt Date: 20080331
  Transmission Date: 20080703
  Serious: Yes (Life-Threatening, Hospitalization, Other)
  Sender: FDA-Public Use
  Company Number: None

PATIENT
  Sex: Male
  Weight: 51 kg

DRUGS (1)
  1. INFLIXIMAB [Suspect]
     Indication: CROHN'S DISEASE
     Dosage: 300MG X1 IV DRIP
     Route: 041
     Dates: start: 20080214, end: 20080214

REACTIONS (7)
  - CSF BACTERIA IDENTIFIED [None]
  - DEPRESSED LEVEL OF CONSCIOUSNESS [None]
  - DYSARTHRIA [None]
  - EATING DISORDER [None]
  - ENCEPHALITIS [None]
  - HEMIPARESIS [None]
  - MENINGITIS STAPHYLOCOCCAL [None]
